FAERS Safety Report 7736869-2 (Version None)
Quarter: 2011Q3

REPORT INFORMATION
  Report Type: 
  Country: None (occurrence: None)
  Receive Date: 20110908
  Receipt Date: 20110829
  Transmission Date: 20111222
  Serious: Yes (Hospitalization)
  Sender: FDA-Public Use
  Company Number: PHHY2011FR77426

PATIENT
  Age: 57 Year
  Sex: Male

DRUGS (20)
  1. CERTICAN [Suspect]
     Dosage: 3 MG, QD
     Dates: start: 20110518
  2. PROGRAF [Suspect]
     Dosage: UNK UKN, UNK
     Dates: start: 20071101, end: 20110512
  3. ACETAMINOPHEN [Concomitant]
     Dosage: 1 G, UNK
  4. ASPIRIN [Concomitant]
     Dosage: 75 MG, QD
  5. REPAGLINIDE [Concomitant]
     Dosage: UNK UKN, UNK
  6. PREDNISONE [Concomitant]
     Dosage: UNK UKN, UNK
  7. COLIMYCINE [Concomitant]
     Dosage: UNK UKN, UNK
  8. PRAVASTATIN [Concomitant]
     Dosage: UNK UKN, UNK
  9. TOCO [Concomitant]
     Dosage: UNK UKN, UNK
  10. STABLON [Concomitant]
     Dosage: UNK UKN, UNK
  11. CELLCEPT [Concomitant]
     Dosage: UNK UKN, UNK
     Dates: start: 20110521
  12. FOSRENOL [Concomitant]
     Dosage: 500 MG, BID
  13. TEMERIT 5 [Concomitant]
     Dosage: UNK UKN, UNK
  14. KEPPRA [Concomitant]
     Dosage: UNK UKN, UNK
  15. CERTICAN [Suspect]
     Indication: LUNG TRANSPLANT
     Dosage: UNK UKN, UNK
     Dates: end: 20110512
  16. DETURGYLONE [Suspect]
     Dosage: SOLUTION FOR NASAL SPRAY
     Dates: end: 20110501
  17. EUPRESSYL [Concomitant]
     Dosage: UNK UKN, UNK
  18. JANUVIA [Concomitant]
     Dosage: 100 MG, QD
  19. CREON [Concomitant]
     Dosage: UNK UKN, UNK
  20. MIRCERA [Concomitant]
     Dosage: UNK UKN, UNK

REACTIONS (8)
  - CEREBRAL VASOCONSTRICTION [None]
  - HEADACHE [None]
  - HYPERTENSION [None]
  - SUBARACHNOID HAEMORRHAGE [None]
  - CEREBRAL HAEMORRHAGE [None]
  - EPSTEIN-BARR VIRAEMIA [None]
  - POSTERIOR REVERSIBLE ENCEPHALOPATHY SYNDROME [None]
  - IMMUNOSUPPRESSANT DRUG LEVEL INCREASED [None]
